FAERS Safety Report 10004418 (Version 2)
Quarter: 2014Q2

REPORT INFORMATION
  Report Type: Spontaneous
  Country: US (occurrence: US)
  Receive Date: 20140312
  Receipt Date: 20140508
  Transmission Date: 20141212
  Serious: No
  Sender: FDA-Public Use
  Company Number: US-PFIZER INC-2014070818

PATIENT
  Age: 52 Year
  Sex: Female
  Weight: 68.03 kg

DRUGS (4)
  1. NEURONTIN [Suspect]
     Indication: NERVE INJURY
     Dosage: 50 MG, UNK
     Dates: start: 2012, end: 2012
  2. NEURONTIN [Suspect]
     Indication: PAIN
     Dosage: 75 MG, UNK
     Dates: start: 2012, end: 2012
  3. NEURONTIN [Suspect]
     Dosage: 100 MG, 1X/DAY
  4. XANAX [Concomitant]
     Indication: ANXIETY DISORDER
     Dosage: 1 MG, 2X/DAY

REACTIONS (1)
  - Drug ineffective [Unknown]
